FAERS Safety Report 4971156-7 (Version None)
Quarter: 2006Q1

REPORT INFORMATION
  Report Type: 
  Country: None (occurrence: None)
  Receive Date: 20060222
  Receipt Date: 20050311
  Transmission Date: 20060701
  Serious: Yes (Hospitalization)
  Sender: FDA-Public Use
  Company Number: HQWYE105914MAR05

PATIENT
  Age: 71 Year
  Sex: Female

DRUGS (5)
  1. PROTONIX [Suspect]
     Indication: GASTROOESOPHAGEAL REFLUX DISEASE
     Dosage: 40 MG 1X PER 1 DAY, ORAL
     Route: 048
     Dates: start: 20040301, end: 20050309
  2. COUMADIN [Suspect]
     Dosage: SEE IMAGE
     Dates: start: 20050301, end: 20050301
  3. .... [Suspect]
  4. DURAGESIC-100 [Concomitant]
  5. HYDROCODONE BITARTRATE [Concomitant]

REACTIONS (4)
  - DRUG SCREEN POSITIVE [None]
  - HAEMORRHAGE [None]
  - THROMBOSIS [None]
  - URINE CANNABINOIDS INCREASED [None]
